FAERS Safety Report 5969118-6 (Version None)
Quarter: 2008Q4

REPORT INFORMATION
  Report Type: 
  Country: None (occurrence: None)
  Receive Date: 20081126
  Receipt Date: 20081013
  Transmission Date: 20090506
  Serious: Yes (Death)
  Sender: FDA-Public Use
  Company Number: NL-GENENTECH-272347

PATIENT
  Sex: Male

DRUGS (3)
  1. BEVACIZUMAB [Suspect]
     Indication: NON-SMALL CELL LUNG CANCER
     Dosage: 15 MG/KG, Q3W
     Route: 042
     Dates: start: 20070606, end: 20070612
  2. CHEMOTHERAPY (UNK INGREDIENTS) [Suspect]
     Indication: DRUG USE FOR UNKNOWN INDICATION
  3. CHEMOTHERAPY (UNK INGREDIENTS) [Concomitant]
     Dosage: UNK
     Dates: start: 20070901

REACTIONS (1)
  - DEATH [None]
